FAERS Safety Report 16789424 (Version 1)
Quarter: 2019Q3

REPORT INFORMATION
  Report Type: Spontaneous
  Country: BR (occurrence: BR)
  Receive Date: 20190910
  Receipt Date: 20190910
  Transmission Date: 20191005
  Serious: Yes (Other)
  Sender: FDA-Public Use
  Company Number: BR-ASTELLAS-2019US035462

PATIENT
  Age: 65 Year
  Sex: Female

DRUGS (3)
  1. DAFLON                             /00426001/ [Concomitant]
     Active Substance: DIOSMIN
     Indication: POOR PERIPHERAL CIRCULATION
     Route: 048
  2. VESICARE [Suspect]
     Active Substance: SOLIFENACIN SUCCINATE
     Indication: HYPERTONIC BLADDER
     Dosage: 10 MG, ONCE DAILY AT MORNING
     Route: 065
  3. METADOXIL [Concomitant]
     Active Substance: METADOXINE
     Indication: HEPATIC STEATOSIS
     Route: 048

REACTIONS (5)
  - Accident [Unknown]
  - Blood calcium increased [Unknown]
  - Ulcer [Unknown]
  - Urinary tract infection [Not Recovered/Not Resolved]
  - Product prescribing error [Not Recovered/Not Resolved]
